FAERS Safety Report 16883367 (Version 1)
Quarter: 2019Q4

REPORT INFORMATION
  Report Type: Spontaneous
  Country: US (occurrence: US)
  Receive Date: 20191004
  Receipt Date: 20191004
  Transmission Date: 20200122
  Serious: No
  Sender: FDA-Public Use
  Company Number: US-TEVA-2019-US-1116342

PATIENT
  Age: 61 Year
  Sex: Female

DRUGS (1)
  1. METFORMIN HYDROCHLORIDE EXTENDED-RELEASE TABLET [Suspect]
     Active Substance: METFORMIN HYDROCHLORIDE
     Dates: start: 2016

REACTIONS (2)
  - Malaise [Recovered/Resolved]
  - Product substitution issue [Unknown]
